FAERS Safety Report 10669449 (Version 8)
Quarter: 2021Q2

REPORT INFORMATION
  Report Type: Report from Study
  Country: JP (occurrence: JP)
  Receive Date: 20141222
  Receipt Date: 20210611
  Transmission Date: 20210716
  Serious: Yes (Death, Hospitalization)
  Sender: FDA-Public Use
  Company Number: JP-BAUSCH-BL-2014-011101

PATIENT
  Age: 61 Year
  Sex: Male
  Weight: 46 kg

DRUGS (16)
  1. CERCINE [Concomitant]
     Active Substance: DIAZEPAM
     Dosage: AS NECESSARY
     Route: 048
     Dates: start: 20150304
  2. MYSLEE [Concomitant]
     Active Substance: ZOLPIDEM TARTRATE
     Indication: HUNTINGTON^S DISEASE
     Dosage: AS NECESSARY
     Route: 048
     Dates: start: 20150204, end: 20150304
  3. MIYA?BM [Concomitant]
     Active Substance: CLOSTRIDIUM BUTYRICUM SPORES STRAIN M-55
     Indication: HUNTINGTON^S DISEASE
     Route: 048
     Dates: start: 20150803, end: 20150831
  4. LAMISIL [Concomitant]
     Active Substance: TERBINAFINE HYDROCHLORIDE
     Indication: HUNTINGTON^S DISEASE
     Dosage: ADEQUATE DOSE
     Dates: start: 20150429, end: 20150706
  5. CERCINE [Concomitant]
     Active Substance: DIAZEPAM
     Indication: HUNTINGTON^S DISEASE
     Route: 048
     Dates: start: 20130520, end: 20130603
  6. CERCINE [Concomitant]
     Active Substance: DIAZEPAM
     Route: 048
     Dates: start: 20150304, end: 20150831
  7. CHOREAZINE TABLETS 12.5 MG [Suspect]
     Active Substance: TETRABENAZINE
     Indication: HUNTINGTON^S DISEASE
     Route: 048
     Dates: start: 20130415, end: 20141222
  8. CERCINE [Concomitant]
     Active Substance: DIAZEPAM
     Route: 048
     Dates: start: 20130603, end: 20141222
  9. CALONAL [Concomitant]
     Active Substance: ACETAMINOPHEN
     Indication: HUNTINGTON^S DISEASE
     Dosage: AS NECESSARY
     Route: 048
     Dates: start: 20150107, end: 20150111
  10. CHOREAZINE TABLETS 12.5 MG [Suspect]
     Active Substance: TETRABENAZINE
     Route: 048
     Dates: start: 20150107, end: 20150831
  11. BENZALIN [Concomitant]
     Indication: PRODUCT USED FOR UNKNOWN INDICATION
     Route: 048
     Dates: start: 20130520, end: 20141222
  12. ADSORBIN [Concomitant]
     Active Substance: ALUMINUM SILICATE
     Indication: HUNTINGTON^S DISEASE
     Route: 048
     Dates: start: 20150803, end: 20180831
  13. FLOMOX [Concomitant]
     Indication: HUNTINGTON^S DISEASE
     Route: 048
     Dates: start: 20150107, end: 20150111
  14. CERCINE [Concomitant]
     Active Substance: DIAZEPAM
     Route: 048
     Dates: start: 20150107, end: 20150304
  15. TANNALBIN [Concomitant]
     Active Substance: ALBUMIN TANNATE
     Indication: HUNTINGTON^S DISEASE
     Route: 048
     Dates: start: 20150803, end: 20150831
  16. ACTOSIN [Concomitant]
     Indication: HUNTINGTON^S DISEASE
     Dosage: ADEQUATE DOSE
     Dates: start: 20150803, end: 20150831

REACTIONS (4)
  - Pneumonia [Recovering/Resolving]
  - Pneumothorax [Fatal]
  - Pneumonia aspiration [Recovering/Resolving]
  - Pneumonia aspiration [Fatal]

NARRATIVE: CASE EVENT DATE: 20140826
